FAERS Safety Report 17884059 (Version 1)
Quarter: 2020Q2

REPORT INFORMATION
  Report Type: Spontaneous
  Country: CA (occurrence: CA)
  Receive Date: 20200611
  Receipt Date: 20200611
  Transmission Date: 20200714
  Serious: Yes (Other)
  Sender: FDA-Public Use
  Company Number: CA-PFIZER INC-2020226755

PATIENT
  Age: 50 Year
  Sex: Female

DRUGS (4)
  1. STILAMIN [SOMATOSTATIN] [Concomitant]
     Active Substance: SOMATOSTATIN
     Dosage: UNK
  2. SANDOSTATIN [Suspect]
     Active Substance: OCTREOTIDE ACETATE
     Indication: CARCINOID TUMOUR
     Dosage: 120 MG, WEEKLY
     Route: 030
  3. TELMISARTAN. [Concomitant]
     Active Substance: TELMISARTAN
     Dosage: UNK
  4. MORPHINE SULFATE. [Suspect]
     Active Substance: MORPHINE SULFATE
     Dosage: UNK
     Route: 065

REACTIONS (26)
  - Administration site induration [Recovering/Resolving]
  - Buttock injury [Recovering/Resolving]
  - Nausea [Recovering/Resolving]
  - Pyrexia [Recovering/Resolving]
  - Weight decreased [Recovering/Resolving]
  - Dizziness [Recovering/Resolving]
  - Fatigue [Recovering/Resolving]
  - Tumour marker increased [Recovering/Resolving]
  - Administration site odour [Recovering/Resolving]
  - Blood pressure increased [Recovering/Resolving]
  - Injection site cyst [Recovering/Resolving]
  - Injection site paraesthesia [Recovering/Resolving]
  - Cough [Recovering/Resolving]
  - Influenza [Recovering/Resolving]
  - Injection site infection [Recovering/Resolving]
  - Productive cough [Recovering/Resolving]
  - Weight increased [Recovering/Resolving]
  - Wound [Recovering/Resolving]
  - Administration site haemorrhage [Recovering/Resolving]
  - Dyspnoea [Recovering/Resolving]
  - Nasopharyngitis [Recovering/Resolving]
  - Administration site discharge [Recovering/Resolving]
  - Anxiety [Recovering/Resolving]
  - Injection site pain [Recovering/Resolving]
  - Administration site abscess [Recovering/Resolving]
  - Feeling hot [Recovering/Resolving]
